FAERS Safety Report 9871141 (Version 2)
Quarter: 2014Q1

REPORT INFORMATION
  Report Type: Spontaneous
  Country: US (occurrence: US)
  Receive Date: 20140205
  Receipt Date: 20140205
  Transmission Date: 20141002
  Serious: Yes (Other)
  Sender: FDA-Public Use
  Company Number: US-GILEAD-2013-0076259

PATIENT
  Age: 65 Year
  Sex: Male
  Weight: 78.91 kg

DRUGS (6)
  1. STRIBILD [Suspect]
     Indication: HIV INFECTION
     Dosage: UNK
     Route: 065
     Dates: start: 20121213, end: 20130218
  2. TRICOR                             /00090101/ [Concomitant]
     Dosage: UNK
     Dates: start: 20050908
  3. ZOLOFT [Concomitant]
  4. LUNESTA [Concomitant]
  5. ADVAIR [Concomitant]
  6. PROVENTIL                          /00139501/ [Concomitant]

REACTIONS (2)
  - Hepatitis [Recovered/Resolved]
  - Transaminases increased [Recovered/Resolved]
